FAERS Safety Report 6472657-5 (Version None)
Quarter: 2009Q4

REPORT INFORMATION
  Report Type: 
  Country: None (occurrence: None)
  Receive Date: 20091201
  Receipt Date: 20091112
  Transmission Date: 20100525
  Serious: Yes (Other)
  Sender: FDA-Public Use
  Company Number: 2009SP036332

PATIENT
  Age: 30 Year
  Sex: Female

DRUGS (4)
  1. MIRTAZAPINE [Suspect]
     Indication: DRUG USE FOR UNKNOWN INDICATION
     Dosage: 15 MG;HS;PO
     Route: 048
  2. SERTRALINE HCL [Concomitant]
  3. HYDROCHLORIDE [Concomitant]
  4. MOSAPRIDE CITRATE [Concomitant]

REACTIONS (3)
  - DYSSTASIA [None]
  - MUSCLE SPASMS [None]
  - TACHYCARDIA [None]
